FAERS Safety Report 15312349 (Version 1)
Quarter: 2018Q3

REPORT INFORMATION
  Report Type: Spontaneous
  Country: TJ (occurrence: TJ)
  Receive Date: 20180823
  Receipt Date: 20180823
  Transmission Date: 20181010
  Serious: Yes (Death)
  Sender: FDA-Public Use
  Company Number: TJ-JNJFOC-20180821744

PATIENT
  Sex: Male
  Weight: 80 kg

DRUGS (7)
  1. PYRAZINAMIDE. [Suspect]
     Active Substance: PYRAZINAMIDE
     Indication: TUBERCULOSIS
     Dosage: 2.0
     Route: 048
     Dates: start: 20180605
  2. MOXIFLOXACINE [Suspect]
     Active Substance: MOXIFLOXACIN
     Indication: TUBERCULOSIS
     Dosage: 0.4
     Route: 048
     Dates: start: 20180605
  3. BEDAQUILINE [Suspect]
     Active Substance: BEDAQUILINE
     Indication: TUBERCULOSIS
     Dosage: 0.4
     Route: 048
     Dates: start: 20180605, end: 20180618
  4. BEDAQUILINE [Suspect]
     Active Substance: BEDAQUILINE
     Indication: TUBERCULOSIS
     Dosage: 0.2
     Route: 048
     Dates: start: 20180619
  5. LINEZOLID. [Suspect]
     Active Substance: LINEZOLID
     Indication: TUBERCULOSIS
     Dosage: 0.6
     Route: 048
     Dates: start: 20180605
  6. PROTIONAMIDE [Suspect]
     Active Substance: PROTIONAMIDE
     Indication: TUBERCULOSIS
     Dosage: 1.0
     Route: 048
     Dates: start: 20180605
  7. CLOFAZIMINE [Suspect]
     Active Substance: CLOFAZIMINE
     Indication: TUBERCULOSIS
     Dosage: 0.3
     Route: 048
     Dates: start: 20180605

REACTIONS (1)
  - Cardiac failure acute [Fatal]
